FAERS Safety Report 8485819-2 (Version None)
Quarter: 2012Q3

REPORT INFORMATION
  Report Type: 
  Country: None (occurrence: None)
  Receive Date: 20120703
  Receipt Date: 20120621
  Transmission Date: 20120928
  Serious: Yes (Disabling)
  Sender: FDA-Public Use
  Company Number: GB-MYLANLABS-2012S1012750

PATIENT
  Age: 72 Year
  Sex: Female
  Weight: 84 kg

DRUGS (16)
  1. SIMVASTATIN [Suspect]
     Indication: PRODUCT USED FOR UNKNOWN INDICATION
  2. ASPIRIN [Concomitant]
     Dates: start: 20120529
  3. BEZAFIBRATE [Concomitant]
     Indication: PRODUCT USED FOR UNKNOWN INDICATION
     Dates: start: 20120529
  4. VALSARTAN [Concomitant]
     Dates: start: 20120529
  5. BISOPROLOL FUMARATE [Concomitant]
     Indication: PRODUCT USED FOR UNKNOWN INDICATION
     Dates: start: 20120402, end: 20120430
  6. BISOPROLOL FUMARATE [Concomitant]
     Dates: start: 20120529
  7. LEVOTHYROXINE SODIUM [Concomitant]
     Indication: PRODUCT USED FOR UNKNOWN INDICATION
     Dates: start: 20120402, end: 20120517
  8. PLAVIX [Concomitant]
     Indication: PRODUCT USED FOR UNKNOWN INDICATION
     Dates: start: 20120215, end: 20120316
  9. ACETAMINOPHEN AND CODEINE PHOSPHATE [Concomitant]
     Dates: start: 20120529
  10. VALSARTAN [Concomitant]
     Indication: PRODUCT USED FOR UNKNOWN INDICATION
     Dates: start: 20120402, end: 20120430
  11. ASPIRIN [Concomitant]
     Indication: PRODUCT USED FOR UNKNOWN INDICATION
     Dates: start: 20120402, end: 20120430
  12. LEVOTHYROXINE SODIUM [Concomitant]
     Dates: start: 20120529
  13. ACETAMINOPHEN AND CODEINE PHOSPHATE [Concomitant]
     Indication: PRODUCT USED FOR UNKNOWN INDICATION
     Dates: start: 20120402, end: 20120430
  14. PLAVIX [Concomitant]
     Dates: start: 20120402, end: 20120502
  15. LANSOPRAZOLE [Concomitant]
     Indication: PRODUCT USED FOR UNKNOWN INDICATION
     Dates: start: 20120529
  16. PLAVIX [Concomitant]
     Dates: start: 20120529

REACTIONS (3)
  - OEDEMA PERIPHERAL [None]
  - PAIN IN EXTREMITY [None]
  - MASS [None]
